FAERS Safety Report 14869817 (Version 2)
Quarter: 2018Q2

REPORT INFORMATION
  Report Type: Spontaneous
  Country: JP (occurrence: JP)
  Receive Date: 20180509
  Receipt Date: 20180528
  Transmission Date: 20180711
  Serious: Yes (Hospitalization)
  Sender: FDA-Public Use
  Company Number: JP-ALLERGAN-1824734US

PATIENT
  Age: 34 Year
  Sex: Male

DRUGS (3)
  1. ESCITALOPRAM OXALATE - BP [Suspect]
     Active Substance: ESCITALOPRAM OXALATE
     Indication: DEPRESSION
     Dosage: 10 MG, QD
     Route: 048
     Dates: start: 20150301, end: 20180216
  2. TECIPUL [Suspect]
     Active Substance: SETIPTILINE
     Indication: DEPRESSION
     Dosage: 2 MG, BID
     Route: 048
     Dates: start: 20150924, end: 20170928
  3. DEPAS [Suspect]
     Active Substance: ETIZOLAM
     Indication: DEPRESSION
     Dosage: 1 MG, TID
     Route: 048
     Dates: start: 20150301

REACTIONS (2)
  - Activation syndrome [Recovered/Resolved]
  - Activation syndrome [Recovered/Resolved]

NARRATIVE: CASE EVENT DATE: 201608
